FAERS Safety Report 9526763 (Version 1)
Quarter: 2013Q3

REPORT INFORMATION
  Report Type: Spontaneous
  Country: CA (occurrence: CA)
  Receive Date: 20130916
  Receipt Date: 20130916
  Transmission Date: 20140515
  Serious: Yes (Death)
  Sender: FDA-Public Use
  Company Number: CA-GLAXOSMITHKLINE-A1040353A

PATIENT
  Sex: 0

DRUGS (1)
  1. VOTRIENT [Suspect]
     Indication: SARCOMA
     Route: 065

REACTIONS (1)
  - Hepatic failure [Fatal]
